FAERS Safety Report 9814521 (Version 1)
Quarter: 2014Q1

REPORT INFORMATION
  Report Type: Spontaneous
  Country: US (occurrence: US)
  Receive Date: 20140113
  Receipt Date: 20140113
  Transmission Date: 20141002
  Serious: No
  Sender: FDA-Public Use
  Company Number: US-BIOGENIDEC-2014BI000036

PATIENT
  Age: 56 Year
  Sex: Male
  Weight: 78 kg

DRUGS (5)
  1. TECFIDERA [Suspect]
     Indication: PRODUCT USED FOR UNKNOWN INDICATION
     Route: 048
  2. TECFIDERA [Suspect]
     Indication: PRODUCT USED FOR UNKNOWN INDICATION
     Route: 048
  3. LIPITOR [Concomitant]
     Route: 048
  4. ASA [Concomitant]
     Route: 048
  5. VITIAMIN D GUMMIE CHEW [Concomitant]
     Dosage: DOSE UNIT:400
     Route: 048

REACTIONS (3)
  - Abdominal distension [Unknown]
  - Decreased appetite [Unknown]
  - Feeling hot [Unknown]
